FAERS Safety Report 22014664 (Version 1)
Quarter: 2023Q1

REPORT INFORMATION
  Report Type: Spontaneous
  Country: US (occurrence: US)
  Receive Date: 20230221
  Receipt Date: 20230221
  Transmission Date: 20230418
  Serious: No
  Sender: FDA-Public Use
  Company Number: US-BRISTOL-MYERS SQUIBB COMPANY-2023-021496

PATIENT
  Age: 71 Year
  Sex: Female

DRUGS (2)
  1. ONUREG [Suspect]
     Active Substance: AZACITIDINE
     Indication: Acute myeloid leukaemia
     Dosage: DOSE : 300MG AND 200MG;? FREQ : DAYS 1-14 THEN REDUCED TO 1 WEEK(DAYS 1-7)
     Dates: start: 202010
  2. ONUREG [Suspect]
     Active Substance: AZACITIDINE
     Dosage: DOSE : 300MG AND 200MG;? FREQ : DAYS 1-14 THEN REDUCED TO 1 WEEK(DAYS 1-7)
     Dates: start: 202010

REACTIONS (2)
  - Nausea [Unknown]
  - Diarrhoea [Unknown]

NARRATIVE: CASE EVENT DATE: 20200401
